FAERS Safety Report 5050397-7 (Version None)
Quarter: 2006Q3

REPORT INFORMATION
  Report Type: 
  Country: None (occurrence: None)
  Receive Date: 20060707
  Receipt Date: 20060626
  Transmission Date: 20061208
  Serious: No
  Sender: FDA-Public Use
  Company Number: 2006-144593-NL

PATIENT
  Age: 45 Year
  Sex: Male

DRUGS (1)
  1. MIRTAZAPINE [Suspect]
     Dosage: 30 MG
     Route: 048

REACTIONS (2)
  - PAIN IN EXTREMITY [None]
  - SLEEP DISORDER [None]
